FAERS Safety Report 13834271 (Version 1)
Quarter: 2017Q3

REPORT INFORMATION
  Report Type: Report from Study
  Country: None (occurrence: DE)
  Receive Date: 20170804
  Receipt Date: 20170804
  Transmission Date: 20171127
  Serious: Yes (Other)
  Sender: FDA-Public Use
  Company Number: DE-ABBVIE-17K-062-2060653-00

PATIENT
  Sex: Male

DRUGS (1)
  1. DUODOPA [Suspect]
     Active Substance: CARBIDOPA\LEVODOPA
     Indication: PARKINSON^S DISEASE
     Dosage: MD: 13.5ML, CRD: 5.0ML/H, ED: 1.5ML
     Route: 050
     Dates: start: 20161229

REACTIONS (2)
  - Paranasal cyst [Not Recovered/Not Resolved]
  - Product lot number issue [Unknown]
